FAERS Safety Report 17185050 (Version 8)
Quarter: 2020Q3

REPORT INFORMATION
  Report Type: Report from Study
  Country: US (occurrence: US)
  Receive Date: 20191220
  Receipt Date: 20200826
  Transmission Date: 20201102
  Serious: Yes (Other)
  Sender: FDA-Public Use
  Company Number: NVSC2019US074661

PATIENT
  Age: 72 Year
  Sex: Female

DRUGS (4)
  1. BEOVU [Suspect]
     Active Substance: BROLUCIZUMAB-DBLL
     Indication: NEOVASCULAR AGE-RELATED MACULAR DEGENERATION
     Dosage: UNK UNK, QMO
     Route: 047
     Dates: start: 20191114
  2. EYLEA [Suspect]
     Active Substance: AFLIBERCEPT
     Indication: PRODUCT USED FOR UNKNOWN INDICATION
     Dosage: UNK
     Route: 065
     Dates: start: 201901
  3. BEOVU [Suspect]
     Active Substance: BROLUCIZUMAB-DBLL
     Dosage: UNK
     Route: 047
  4. BEOVU [Suspect]
     Active Substance: BROLUCIZUMAB-DBLL
     Dosage: UNK UNK, QMO (LEFT EYE)
     Route: 047
     Dates: start: 20191213

REACTIONS (10)
  - Vitreous floaters [Recovered/Resolved]
  - Vision blurred [Unknown]
  - Headache [Unknown]
  - Eye pain [Unknown]
  - Glaucoma [Unknown]
  - Nausea [Unknown]
  - Visual impairment [Recovering/Resolving]
  - Injection site pain [Recovered/Resolved]
  - Eye inflammation [Not Recovered/Not Resolved]
  - Cataract [Unknown]

NARRATIVE: CASE EVENT DATE: 201901
